FAERS Safety Report 5935210-5 (Version None)
Quarter: 2008Q4

REPORT INFORMATION
  Report Type: 
  Country: None (occurrence: None)
  Receive Date: 20081028
  Receipt Date: 20081016
  Transmission Date: 20090506
  Serious: Yes (Hospitalization, Other)
  Sender: FDA-Public Use
  Company Number: 2008-03916

PATIENT

DRUGS (2)
  1. VELCADE [Suspect]
     Indication: HODGKIN'S DISEASE
     Dosage: 1 MG/M2, INTRAVENOUS
     Route: 042
  2. GEMCITABINE [Suspect]
     Indication: HODGKIN'S DISEASE
     Dosage: 800 MG/M2

REACTIONS (7)
  - ABDOMINAL PAIN [None]
  - DEEP VEIN THROMBOSIS [None]
  - LUNG NEOPLASM MALIGNANT [None]
  - MIGRAINE [None]
  - NEUTROPENIA [None]
  - SEPSIS [None]
  - TRANSAMINASES INCREASED [None]
